FAERS Safety Report 17649639 (Version 1)
Quarter: 2020Q2

REPORT INFORMATION
  Report Type: Spontaneous
  Country: NL (occurrence: NL)
  Receive Date: 20200409
  Receipt Date: 20200409
  Transmission Date: 20200713
  Serious: Yes (Disabling, Other)
  Sender: FDA-Public Use
  Company Number: NL-TEVA-2020-NL-1221044

PATIENT
  Age: 68 Year
  Sex: Female
  Weight: 82 kg

DRUGS (5)
  1. AMOXICILLIN+CLAVULANIC ACID [Suspect]
     Active Substance: AMOXICILLIN\CLAVULANIC ACID
     Indication: BRONCHIAL SECRETION RETENTION
     Route: 065
  2. AMOXICILLIN+CLAVULANIC ACID [Suspect]
     Active Substance: AMOXICILLIN\CLAVULANIC ACID
     Indication: SENSATION OF FOREIGN BODY
     Dosage: 1 DF, TID (EVERY 8 HOURS) (500/125MG)
     Route: 048
     Dates: start: 20190121, end: 20190125
  3. OXAZEPAM. [Concomitant]
     Active Substance: OXAZEPAM
     Indication: PRODUCT USED FOR UNKNOWN INDICATION
     Dosage: 10 MG, UNK (1-2 DD)
     Route: 065
  4. AMOXICILLIN+CLAVULANIC ACID [Suspect]
     Active Substance: AMOXICILLIN\CLAVULANIC ACID
     Indication: DYSPHAGIA
     Route: 065
  5. OMEPRAZOLE. [Concomitant]
     Active Substance: OMEPRAZOLE
     Indication: ABDOMINAL PAIN UPPER
     Dosage: 40 OT, UNK
     Route: 065

REACTIONS (16)
  - Diarrhoea [Unknown]
  - Adverse event [Recovered/Resolved]
  - Haematochezia [Recovering/Resolving]
  - Chromaturia [Recovering/Resolving]
  - Constipation [Not Recovered/Not Resolved]
  - Gastrointestinal disorder [Not Recovered/Not Resolved]
  - Malaise [Not Recovered/Not Resolved]
  - Faeces discoloured [Recovering/Resolving]
  - Abdominal pain upper [Recovered/Resolved]
  - Vomiting [Not Recovered/Not Resolved]
  - Jaundice [Not Recovered/Not Resolved]
  - Dumping syndrome [Recovered/Resolved]
  - Jaundice cholestatic [Not Recovered/Not Resolved]
  - Pruritus [Not Recovered/Not Resolved]
  - Nausea [Not Recovered/Not Resolved]
  - Weight decreased [Unknown]

NARRATIVE: CASE EVENT DATE: 201901
